FAERS Safety Report 8737499 (Version 2)
Quarter: 2013Q1

REPORT INFORMATION
  Report Type: Spontaneous
  Country: JP (occurrence: JP)
  Receive Date: 20120822
  Receipt Date: 20130306
  Transmission Date: 20140127
  Serious: Yes (Hospitalization)
  Sender: FDA-Public Use
  Company Number: JP-009507513-1208JPN001340

PATIENT
  Age: 74 Year
  Sex: Female
  Weight: 28 kg

DRUGS (4)
  1. PEGINTRON [Suspect]
     Indication: HEPATITIS C
     Dosage: 20 MICROGRAM, QW
     Route: 058
     Dates: start: 20110602, end: 20120523
  2. REBETOL [Suspect]
     Indication: HEPATITIS C
     Dosage: 600 MG, QD
     Route: 048
     Dates: start: 20110602, end: 20110623
  3. REBETOL [Suspect]
     Dosage: 200 MG, BID
     Route: 048
     Dates: start: 20110624, end: 20120530
  4. URSO [Concomitant]
     Dosage: DIVIDED DOSE FREQUENCY UNKNOWN
     Route: 048
     Dates: end: 20120530

REACTIONS (1)
  - Peritoneal tuberculosis [Not Recovered/Not Resolved]
